FAERS Safety Report 20591805 (Version 1)
Quarter: 2022Q1

REPORT INFORMATION
  Report Type: Spontaneous
  Country: US (occurrence: US)
  Receive Date: 20220314
  Receipt Date: 20220314
  Transmission Date: 20220423
  Serious: No
  Sender: FDA-Public Use
  Company Number: US-PFIZER INC-202200248267

PATIENT
  Sex: Male

DRUGS (2)
  1. TOFACITINIB [Suspect]
     Active Substance: TOFACITINIB
     Indication: Colitis ulcerative
     Dosage: 10 MG, 2X/DAY
  2. TOFACITINIB [Suspect]
     Active Substance: TOFACITINIB
     Dosage: 10 MG, 3X/DAY

REACTIONS (1)
  - Off label use [Unknown]
